FAERS Safety Report 5743669-1 (Version None)
Quarter: 2008Q2

REPORT INFORMATION
  Report Type: 
  Country: None (occurrence: None)
  Receive Date: 20080516
  Receipt Date: 20080502
  Transmission Date: 20081010
  Serious: Yes (Other)
  Sender: FDA-Public Use
  Company Number: DSA_31832_2008

PATIENT
  Age: 82 Year
  Sex: Female

DRUGS (6)
  1. ENALAPRIL MALEATE [Suspect]
     Indication: DRUG USE FOR UNKNOWN INDICATION
     Dosage: (20 MG FREQUENCY UNKNOWN ORAL)
     Route: 048
     Dates: start: 19980101
  2. PANTOPRAZOLE [Concomitant]
  3. XYZAL [Concomitant]
  4. ZOLPIDEM TARTRATE [Concomitant]
  5. ACETAMINOPHEN [Concomitant]
  6. DICLOFENAC [Concomitant]

REACTIONS (3)
  - DIZZINESS [None]
  - NEPHROSCLEROSIS [None]
  - TACHYCARDIA [None]
